FAERS Safety Report 20380252 (Version 1)
Quarter: 2022Q1

REPORT INFORMATION
  Report Type: Report from Study
  Country: US (occurrence: US)
  Receive Date: 20220126
  Receipt Date: 20220126
  Transmission Date: 20220423
  Serious: Yes (Hospitalization, Other)
  Sender: FDA-Public Use
  Company Number: US-ABBVIE-21K-163-4111684-00

PATIENT
  Age: 60 Year
  Sex: Female
  Weight: 81.720 kg

DRUGS (10)
  1. HUMIRA [Suspect]
     Active Substance: ADALIMUMAB
     Indication: Rheumatoid arthritis
     Route: 058
  2. PREDNISONE [Suspect]
     Active Substance: PREDNISONE
     Indication: Product used for unknown indication
     Route: 065
  3. MODERNA COVID-19 VACCINE [Concomitant]
     Active Substance: ELASOMERAN
     Indication: COVID-19 immunisation
     Dosage: MODERNA FIRST DOSE
     Route: 030
     Dates: start: 2021, end: 2021
  4. MODERNA COVID-19 VACCINE [Concomitant]
     Active Substance: ELASOMERAN
     Dosage: MODERNA SECOND DOSE
     Route: 030
     Dates: start: 2021, end: 2021
  5. MODERNA COVID-19 VACCINE [Concomitant]
     Active Substance: ELASOMERAN
     Dosage: MODERNA THIRD DOSE
     Route: 030
     Dates: start: 202111, end: 202111
  6. PROLIA [Concomitant]
     Active Substance: DENOSUMAB
     Indication: Bone disorder
     Route: 065
  7. TYLENOL [Concomitant]
     Active Substance: ACETAMINOPHEN
     Indication: Pain
     Route: 065
  8. CALCIUM [Concomitant]
     Active Substance: CALCIUM
     Indication: Bone disorder
  9. LEFLUNOMIDE [Concomitant]
     Active Substance: LEFLUNOMIDE
     Indication: Rheumatoid arthritis
     Route: 065
  10. METHIMAZOLE [Concomitant]
     Active Substance: METHIMAZOLE
     Indication: Basedow^s disease
     Route: 065

REACTIONS (15)
  - Upper limb fracture [Recovering/Resolving]
  - Osteoporosis [Recovering/Resolving]
  - Lower limb fracture [Recovered/Resolved]
  - Upper limb fracture [Recovered/Resolved]
  - Lower limb fracture [Recovered/Resolved]
  - Arthritis [Recovered/Resolved]
  - Upper limb fracture [Recovered/Resolved]
  - Arthritis [Recovered/Resolved]
  - Nausea [Recovered/Resolved]
  - Chills [Recovered/Resolved]
  - Dry skin [Recovered/Resolved]
  - Scab [Recovered/Resolved]
  - Rash [Recovered/Resolved]
  - Bone deformity [Not Recovered/Not Resolved]
  - Fungal infection [Recovered/Resolved]

NARRATIVE: CASE EVENT DATE: 20180601
